FAERS Safety Report 23627362 (Version 1)
Quarter: 2024Q1

REPORT INFORMATION
  Report Type: Spontaneous
  Country: US (occurrence: US)
  Receive Date: 20240313
  Receipt Date: 20240313
  Transmission Date: 20240410
  Serious: No
  Sender: FDA-Public Use
  Company Number: US-AMGEN-USASP2024050006

PATIENT

DRUGS (2)
  1. REPATHA [Suspect]
     Active Substance: EVOLOCUMAB
     Indication: Product used for unknown indication
     Route: 065
  2. LEQVIO [Concomitant]
     Active Substance: INCLISIRAN SODIUM

REACTIONS (2)
  - Drug ineffective [Unknown]
  - Low density lipoprotein increased [Unknown]
